FAERS Safety Report 7752358-3 (Version None)
Quarter: 2011Q3

REPORT INFORMATION
  Report Type: 
  Country: None (occurrence: None)
  Receive Date: 20110915
  Receipt Date: 20110817
  Transmission Date: 20111222
  Serious: Yes (Hospitalization)
  Sender: FDA-Public Use
  Company Number: PHHO2010US10677

PATIENT
  Sex: Female

DRUGS (19)
  1. LISINOPRIL [Concomitant]
  2. METOPROLOL TARTRATE [Concomitant]
  3. NITROGLYCERIN [Concomitant]
  4. NORTRIPTYLINE HCL [Concomitant]
  5. CYCLOSPORINE [Suspect]
     Indication: RENAL TRANSPLANT
     Dosage: 300 MG, DAILY
     Route: 048
     Dates: start: 20070120
  6. OXYCONTIN [Concomitant]
  7. PAMELOR [Concomitant]
  8. COLACE [Concomitant]
  9. PRAVASTATIN [Concomitant]
  10. XANAX [Concomitant]
  11. CYCLOSPORINE [Suspect]
     Dosage: 275 MG, DAILY
     Route: 048
  12. PREDNISONE [Suspect]
     Indication: RENAL TRANSPLANT
     Dosage: 5 MG, QD
     Route: 048
     Dates: start: 20070326
  13. NEURONTIN [Concomitant]
  14. M.V.I. [Concomitant]
  15. OXYCODONE HCL [Concomitant]
  16. PEPCID [Concomitant]
  17. MYCOPHENOLATE MOFETIL (CELLCEPT) [Suspect]
     Indication: RENAL TRANSPLANT
     Dosage: 3 G, DAILY
     Route: 048
     Dates: start: 20070120
  18. HYDROCODONE [Concomitant]
  19. GABAPENTIN [Concomitant]
     Dosage: UNK
     Dates: start: 20091211

REACTIONS (17)
  - SINUS TACHYCARDIA [None]
  - PERINEAL PAIN [None]
  - MITRAL VALVE INCOMPETENCE [None]
  - ABDOMINAL PAIN [None]
  - URINARY TRACT INFECTION [None]
  - HAEMATURIA [None]
  - DYSPNOEA [None]
  - RIGHT VENTRICULAR SYSTOLIC PRESSURE INCREASED [None]
  - LEFT VENTRICULAR HYPERTROPHY [None]
  - CHEST PAIN [None]
  - CHEST DISCOMFORT [None]
  - ELECTROCARDIOGRAM T WAVE ABNORMAL [None]
  - FATIGUE [None]
  - NAUSEA [None]
  - BETA HAEMOLYTIC STREPTOCOCCAL INFECTION [None]
  - KIDNEY TRANSPLANT REJECTION [None]
  - PYELONEPHRITIS [None]
